FAERS Safety Report 6230723-3 (Version None)
Quarter: 2009Q2

REPORT INFORMATION
  Report Type: 
  Country: None (occurrence: None)
  Receive Date: 20090611
  Receipt Date: 20090611
  Transmission Date: 20091009
  Serious: No
  Sender: FDA-Public Use
  Company Number: None

PATIENT
  Age: 74 Year
  Sex: Female
  Weight: 91.6266 kg

DRUGS (1)
  1. NASONEX [Suspect]
     Indication: HYPERSENSITIVITY
     Dosage: 2 SPRAYS EACH SIDE 1 DAILY NOSE
     Route: 045
     Dates: start: 20090514, end: 20090523

REACTIONS (3)
  - CHEST PAIN [None]
  - INSOMNIA [None]
  - PRODUCT QUALITY ISSUE [None]
